FAERS Safety Report 7912157-6 (Version None)
Quarter: 2011Q4

REPORT INFORMATION
  Report Type: 
  Country: None (occurrence: None)
  Receive Date: 20111114
  Receipt Date: 20111107
  Transmission Date: 20120403
  Serious: Yes (Other)
  Sender: FDA-Public Use
  Company Number: US-GILEAD-2011-0046471

PATIENT
  Age: 68 Year
  Sex: Female

DRUGS (3)
  1. REVATIO [Concomitant]
  2. LETAIRIS [Suspect]
     Indication: PRODUCT USED FOR UNKNOWN INDICATION
     Dosage: 5 MG, UNK
     Route: 048
     Dates: start: 20110428
  3. COUMADIN [Concomitant]

REACTIONS (3)
  - DYSPNOEA [None]
  - THROMBOSIS [None]
  - MALAISE [None]
